FAERS Safety Report 17700220 (Version 1)
Quarter: 2020Q2

REPORT INFORMATION
  Report Type: Spontaneous
  Country: US (occurrence: US)
  Receive Date: 20200423
  Receipt Date: 20200423
  Transmission Date: 20200714
  Serious: Yes (Other)
  Sender: FDA-Public Use
  Company Number: US-ELI_LILLY_AND_COMPANY-US202004007065

PATIENT
  Sex: Female

DRUGS (10)
  1. HUMALOG KWIKPEN [Suspect]
     Active Substance: INSULIN LISPRO
     Dosage: 6 U, PRN
     Route: 065
  2. HUMALOG [Suspect]
     Active Substance: INSULIN LISPRO
     Indication: DIABETES MELLITUS
     Dosage: UNK, UNKNOWN
     Route: 065
  3. ILETIN BEEF/PORK LENTE [Suspect]
     Active Substance: INSULIN BEEF/PORK
     Indication: DIABETES MELLITUS
     Dosage: UNK UNK, UNKNOWN
     Route: 065
  4. HUMALOG KWIKPEN [Suspect]
     Active Substance: INSULIN LISPRO
     Dosage: 6 U, PRN
     Route: 065
  5. HUMALOG KWIKPEN [Suspect]
     Active Substance: INSULIN LISPRO
     Dosage: 4 U, UNKNOWN (WHILE EATING)
     Route: 065
  6. HUMALOG KWIKPEN [Suspect]
     Active Substance: INSULIN LISPRO
     Indication: DIABETES MELLITUS
     Dosage: 6 U, PRN
     Route: 065
  7. HUMALOG KWIKPEN [Suspect]
     Active Substance: INSULIN LISPRO
     Indication: DIABETES MELLITUS
     Dosage: 6 U, PRN
     Route: 065
  8. HUMALOG KWIKPEN [Suspect]
     Active Substance: INSULIN LISPRO
     Dosage: 4 U, UNKNOWN (WHILE EATING)
     Route: 065
  9. HUMALOG KWIKPEN [Suspect]
     Active Substance: INSULIN LISPRO
     Dosage: 4 U, UNKNOWN (WHILE EATING)
     Route: 065
  10. HUMALOG KWIKPEN [Suspect]
     Active Substance: INSULIN LISPRO
     Dosage: 4 U, UNKNOWN (WHILE EATING)
     Route: 065

REACTIONS (4)
  - Blindness unilateral [Unknown]
  - Eye haemorrhage [Unknown]
  - Blood glucose decreased [Unknown]
  - Abdominal distension [Unknown]

NARRATIVE: CASE EVENT DATE: 2001
